FAERS Safety Report 7498563-5 (Version None)
Quarter: 2011Q2

REPORT INFORMATION
  Report Type: 
  Country: None (occurrence: None)
  Receive Date: 20110516
  Receipt Date: 20110502
  Transmission Date: 20111010
  Serious: Yes (Other)
  Sender: FDA-Public Use
  Company Number: 031382

PATIENT
  Sex: Female
  Weight: 47 kg

DRUGS (5)
  1. METHOTREXATE [Concomitant]
  2. PREDNISONE [Concomitant]
  3. ACTONEL [Concomitant]
  4. CIMZIA [Suspect]
     Indication: RHEUMATOID ARTHRITIS
     Dosage: 400 MG, 1X15 DAYS, 2 INJECTIONS OF 200 MG ONE SINGLE DAY, SUBCUTANEOUS
     Route: 058
     Dates: start: 20110406, end: 20110406
  5. CIMZIA [Suspect]
     Indication: SJOGREN'S SYNDROME
     Dosage: 400 MG, 1X15 DAYS, 2 INJECTIONS OF 200 MG ONE SINGLE DAY, SUBCUTANEOUS
     Route: 058
     Dates: start: 20110406, end: 20110406

REACTIONS (1)
  - HYPERSENSITIVITY [None]
